FAERS Safety Report 6982275-8 (Version None)
Quarter: 2010Q3

REPORT INFORMATION
  Report Type: 
  Country: None (occurrence: None)
  Receive Date: 20100914
  Receipt Date: 20091217
  Transmission Date: 20110219
  Serious: No
  Sender: FDA-Public Use
  Company Number: US-PFIZER INC-2009309023

PATIENT
  Sex: Male
  Weight: 64 kg

DRUGS (15)
  1. LYRICA [Suspect]
     Indication: POST HERPETIC NEURALGIA
     Dosage: 100 MG, 2X/DAY
     Route: 048
     Dates: start: 20080801
  2. LYRICA [Suspect]
     Indication: HERPES ZOSTER
  3. LISINOPRIL [Concomitant]
     Indication: HYPERTENSION
     Dosage: 7.5 MG, UNK
     Route: 048
  4. LIPITOR [Concomitant]
     Indication: BLOOD CHOLESTEROL INCREASED
     Dosage: 20 MG, 1X/DAY
     Route: 048
  5. GLIMEPIRIDE [Concomitant]
     Indication: DIABETES MELLITUS
     Dosage: 5 MG, 1X/DAY
     Route: 048
  6. METOPROLOL TARTRATE [Concomitant]
     Dosage: 50 MG, 1X/DAY
     Route: 048
  7. TRICOR [Concomitant]
     Indication: BLOOD TRIGLYCERIDES ABNORMAL
     Dosage: 145 MG, 1X/DAY
     Route: 048
  8. METFORMIN HYDROCHLORIDE [Concomitant]
     Indication: DIABETES MELLITUS
     Dosage: 500 MG, 3X/DAY
     Route: 048
  9. PRILOSEC [Concomitant]
     Indication: GASTROOESOPHAGEAL REFLUX DISEASE
     Dosage: 20 MG, 1X/DAY
     Route: 048
  10. OXYCET [Concomitant]
     Indication: PAIN
     Dosage: UNK
  11. VITAMIN B-12 [Concomitant]
     Dosage: UNK
  12. IRON [Concomitant]
     Dosage: UNK
  13. ACETYLSALICYLIC ACID [Concomitant]
     Dosage: 81 MG, 1X/DAY
     Route: 048
  14. ASCORBIC ACID/COPPER/RETINOL/TOCOPHEROL/ZINC [Concomitant]
     Dosage: UNK
  15. NITROGLYCERIN [Concomitant]
     Indication: ANGINA PECTORIS
     Dosage: 4 MG, AS NEEDED
     Route: 048

REACTIONS (5)
  - BLISTER [None]
  - DRUG INEFFECTIVE [None]
  - DRY MOUTH [None]
  - OEDEMA PERIPHERAL [None]
  - WEIGHT INCREASED [None]
